FAERS Safety Report 6971929-5 (Version None)
Quarter: 2010Q3

REPORT INFORMATION
  Report Type: 
  Country: None (occurrence: None)
  Receive Date: 20100908
  Receipt Date: 20100901
  Transmission Date: 20110219
  Serious: Yes (Hospitalization)
  Sender: FDA-Public Use
  Company Number: JP-B.I. PHARMACEUTICALS,INC./RIDGEFIELD-2010-BP-09976NB

PATIENT
  Age: 81 Year
  Sex: Female

DRUGS (3)
  1. BI-SIFROL TABLETS [Suspect]
     Dosage: 4.5 MG
     Route: 048
     Dates: end: 20100828
  2. CARBIDOPA AND LEVODOPA [Concomitant]
     Dosage: 4.5DF
     Route: 048
  3. BUFFERIN [Concomitant]
     Route: 048

REACTIONS (2)
  - HOSPITALISATION [None]
  - PYREXIA [None]
